FAERS Safety Report 11832610 (Version 2)
Quarter: 2015Q4

REPORT INFORMATION
  Report Type: Spontaneous
  Country: PL (occurrence: PL)
  Receive Date: 20151214
  Receipt Date: 20151231
  Transmission Date: 20160305
  Serious: Yes (Life-Threatening, Hospitalization)
  Sender: FDA-Public Use
  Company Number: PL-PFIZER INC-2015440038

PATIENT
  Age: 17 Year
  Sex: Female
  Weight: 70 kg

DRUGS (3)
  1. EFECTIN ER [Suspect]
     Active Substance: VENLAFAXINE HYDROCHLORIDE
     Indication: DEPRESSION
     Dosage: 150 MG, 1X/DAY
     Route: 048
     Dates: start: 201503, end: 20150905
  2. EFECTIN ER [Suspect]
     Active Substance: VENLAFAXINE HYDROCHLORIDE
     Dosage: 150 MG DOZEN TABLETS
     Route: 048
     Dates: start: 20150906, end: 20150906
  3. EFECTIN ER [Suspect]
     Active Substance: VENLAFAXINE HYDROCHLORIDE
     Dosage: 150 MG, UNK
     Route: 048
     Dates: start: 201509

REACTIONS (6)
  - Communication disorder [Recovering/Resolving]
  - Product use issue [Unknown]
  - Intentional overdose [Unknown]
  - Seizure [Recovering/Resolving]
  - Loss of consciousness [Recovering/Resolving]
  - Sluggishness [Recovering/Resolving]

NARRATIVE: CASE EVENT DATE: 201503
